FAERS Safety Report 9500026 (Version 1)
Quarter: 2013Q1

REPORT INFORMATION
  Report Type: Spontaneous
  Country: US (occurrence: None)
  Receive Date: 20130107
  Receipt Date: 20130107
  Transmission Date: 20140127
  Serious: Yes (Other)
  Sender: FDA-Public Use
  Company Number: PHEH2012US023229

PATIENT
  Sex: Female

DRUGS (8)
  1. GILENYA [Suspect]
     Route: 048
  2. KLONOPIN [Concomitant]
  3. COLESTIPOL [Concomitant]
  4. BACLOFEN [Concomitant]
  5. PRILOSEC [Concomitant]
  6. IBUPROFEN [Concomitant]
  7. VIT D3 (COLECALCIFEROL) [Concomitant]
  8. TIZANIDINE [Concomitant]

REACTIONS (7)
  - Pneumonia [None]
  - Ocular hyperaemia [None]
  - Oropharyngeal pain [None]
  - Visual impairment [None]
  - Vision blurred [None]
  - Influenza [None]
  - Weight decreased [None]
